FAERS Safety Report 6938295-2 (Version None)
Quarter: 2010Q3

REPORT INFORMATION
  Report Type: 
  Country: None (occurrence: None)
  Receive Date: 20100824
  Receipt Date: 20100812
  Transmission Date: 20110219
  Serious: Yes (Hospitalization, Other)
  Sender: FDA-Public Use
  Company Number: US-PFIZER INC-2010095258

PATIENT
  Sex: Female

DRUGS (9)
  1. CHANTIX [Suspect]
     Indication: SMOKING CESSATION THERAPY
     Dosage: STARTER MONTH PACK
     Dates: start: 20070611, end: 20070625
  2. CHANTIX [Suspect]
     Dosage: STARTER MONTH PACK
     Dates: start: 20070715, end: 20070729
  3. METHADONE [Concomitant]
     Indication: PAIN
     Dosage: UNK
     Dates: start: 20030101
  4. SEROQUEL [Concomitant]
     Indication: BIPOLAR DISORDER
     Dosage: UNK
     Dates: start: 20070101, end: 20090101
  5. PERCOCET [Concomitant]
     Indication: PAIN
     Dosage: UNK
     Dates: start: 20070101, end: 20080101
  6. LORAZEPAM [Concomitant]
     Indication: ANXIETY
     Dosage: UNK
     Dates: start: 20070101, end: 20080101
  7. OXYCODONE [Concomitant]
     Indication: PAIN
     Dosage: UNK
     Dates: start: 20030101, end: 20090101
  8. LAMICTAL [Concomitant]
     Indication: DEPRESSION
  9. LAMICTAL [Concomitant]
     Indication: BIPOLAR DISORDER

REACTIONS (5)
  - ANXIETY [None]
  - BIPOLAR DISORDER [None]
  - DEPRESSION [None]
  - INTENTIONAL OVERDOSE [None]
  - SUICIDE ATTEMPT [None]
